FAERS Safety Report 8194077-8 (Version None)
Quarter: 2012Q1

REPORT INFORMATION
  Report Type: 
  Country: None (occurrence: None)
  Receive Date: 20120308
  Receipt Date: 20120229
  Transmission Date: 20120608
  Serious: Yes (Other)
  Sender: FDA-Public Use
  Company Number: US-ASTRAZENECA-2011SE68094

PATIENT
  Sex: Female
  Weight: 90.7 kg

DRUGS (4)
  1. PRILOSEC OTC [Suspect]
     Dosage: TWO TIMES A DAY
     Route: 048
  2. PREVACID [Concomitant]
     Route: 048
  3. PRILOSEC [Suspect]
     Route: 048
  4. NEXIUM [Suspect]
     Route: 048
     Dates: start: 20050101

REACTIONS (11)
  - NEOPLASM MALIGNANT [None]
  - LYMPHOMA [None]
  - GASTROOESOPHAGEAL REFLUX DISEASE [None]
  - OESOPHAGEAL SPASM [None]
  - INAPPROPRIATE SCHEDULE OF DRUG ADMINISTRATION [None]
  - CHEST PAIN [None]
  - TREATMENT FAILURE [None]
  - BLOOD DISORDER [None]
  - ERUCTATION [None]
  - DRUG INEFFECTIVE [None]
  - DRUG DOSE OMISSION [None]
